FAERS Safety Report 8908818 (Version 2)
Quarter: 2012Q4

REPORT INFORMATION
  Report Type: 
  Country: JP (occurrence: JP)
  Receive Date: 20121114
  Receipt Date: 20121217
  Transmission Date: 20130627
  Serious: Yes (Hospitalization)
  Sender: FDA-Public Use
  Company Number: JP-ROCHE-1154062

PATIENT
  Age: 59 Year
  Sex: Female
  Weight: 40 kg

DRUGS (6)
  1. ACTEMRA [Suspect]
     Indication: RHEUMATOID ARTHRITIS
     Dosage: Dosage is uncertain
     Route: 041
     Dates: start: 20121005
  2. METOLATE [Concomitant]
     Route: 065
     Dates: start: 20120629
  3. METHOTREXATE [Concomitant]
     Indication: RHEUMATOID ARTHRITIS
     Route: 048
     Dates: start: 20120629
  4. FERROMIA [Concomitant]
     Indication: ANAEMIA
     Route: 048
     Dates: start: 20120629
  5. REBAMIPIDE [Concomitant]
     Indication: RHEUMATOID ARTHRITIS
     Route: 048
     Dates: start: 20120629
  6. FOLIAMIN [Concomitant]
     Indication: RHEUMATOID ARTHRITIS
     Route: 048
     Dates: start: 20121102

REACTIONS (3)
  - Gait disturbance [Recovered/Resolved]
  - Rash [Recovered/Resolved]
  - Back pain [Recovering/Resolving]
